FAERS Safety Report 9236370 (Version 1)
Quarter: 2013Q2

REPORT INFORMATION
  Report Type: Spontaneous
  Country: US (occurrence: US)
  Receive Date: 20130417
  Receipt Date: 20130417
  Transmission Date: 20140414
  Serious: No
  Sender: FDA-Public Use
  Company Number: US-BAYER-2013-045084

PATIENT
  Age: 77 Year
  Sex: Male
  Weight: 193 kg

DRUGS (7)
  1. ALEVE CAPLET [Suspect]
     Dosage: 2 DF, BID
     Route: 048
     Dates: start: 201303
  2. BAYER GENUINE ASPIRIN ORIGINAL STRENGTH [Suspect]
     Dosage: 2 DF, BID
     Route: 048
     Dates: start: 201211, end: 201303
  3. MELOXICAM [Concomitant]
  4. PRAVASTATIN [Concomitant]
  5. METFORMIN [Concomitant]
  6. GLIPIZIDE [Concomitant]
  7. SPIRONOLACTONE [Concomitant]

REACTIONS (4)
  - Incorrect dose administered [None]
  - Incorrect drug administration duration [None]
  - Drug ineffective [None]
  - Incorrect drug administration duration [None]
